FAERS Safety Report 16681511 (Version 1)
Quarter: 2019Q3

REPORT INFORMATION
  Report Type: Spontaneous
  Country: NL (occurrence: NL)
  Receive Date: 20190808
  Receipt Date: 20190808
  Transmission Date: 20191004
  Serious: Yes (Other)
  Sender: FDA-Public Use
  Company Number: NL-TEVA-2019-NL-1089667

PATIENT
  Age: 64 Year
  Sex: Male
  Weight: 84 kg

DRUGS (12)
  1. LISONIPRIL 5MG [Concomitant]
     Dosage: 1DD1; 5 MILLIGRAM, 1 DAY
  2. EZETIMIB 10MG [Concomitant]
     Dosage: 1DD1; 10 MILLIGRAM, 1 DAY
  3. GEMFIBROZIL 600MG [Concomitant]
     Active Substance: GEMFIBROZIL
     Dosage: 2DD1; 600 MILLIGRAM, 12 HOURS
  4. TESTOSTERON GEL 20MG/G [Concomitant]
     Dosage: 20MG/G
  5. INSULINE DEGLUDEC 200E/ML INJVLST FLEXTOUCH [Concomitant]
     Dosage: 1DD96 UNITS ;  200E/ML; 96 IU; 1 DAY
  6. ACETYLSALICILZUUR DISPERTABLET 80MG [Concomitant]
     Dosage: 1DD1; 80 MILLIGRAM, 1 DAY
  7. CLOPIDOGREL [Concomitant]
     Active Substance: CLOPIDOGREL BISULFATE
     Dosage: 1DD1; 75 MILLIGRAM, 1 DAY
  8. COTRIMOXAZOL TABLET, 80/400 MG (MILLIGRAM) [Suspect]
     Active Substance: SULFAMETHOXAZOLE\TRIMETHOPRIM
     Indication: PROPHYLAXIS
     Dosage: 1X PER DAY 1 PIECE; 1 DOSAGE FORM, 1 DAY; 80/400 MILLIGRAM
     Dates: start: 20190629, end: 20190701
  9. COLECALCIFEROL 800MG/500IE [Concomitant]
     Dosage: 1DD1; 1 DOSAGE FORM, 1 DAY ; 800MG/500IE
  10. PANTOPRAZOL 40MG [Concomitant]
     Active Substance: PANTOPRAZOLE SODIUM
     Dosage: 1DD1; 40 MILLIGRAM, 1 DAY
  11. METOPROLOL SUCCINAAT MGA 150MG [Concomitant]
     Dosage: 1DD1; 150 MILLIGRAM, 1 DAY
  12. NATRIUMWATERSTOFCARBONAAT 500MG [Concomitant]
     Dosage: 3DD1; 500 MILLIGRAM; 8 HOURS

REACTIONS (1)
  - Renal impairment [Recovering/Resolving]

NARRATIVE: CASE EVENT DATE: 20190701
